FAERS Safety Report 8288605-1 (Version None)
Quarter: 2012Q2

REPORT INFORMATION
  Report Type: 
  Country: None (occurrence: None)
  Receive Date: 20120416
  Receipt Date: 20120405
  Transmission Date: 20120825
  Serious: Yes (Hospitalization, Other)
  Sender: FDA-Public Use
  Company Number: US-RB-039102-12

PATIENT
  Age: 22 Year
  Sex: Female

DRUGS (3)
  1. SUBOXONE [Suspect]
     Indication: DRUG DEPENDENCE
     Route: 060
     Dates: start: 20090101, end: 20100101
  2. SUBOXONE [Suspect]
     Indication: DRUG DEPENDENCE
     Route: 060
     Dates: start: 20100101, end: 20120101
  3. SUBOXONE [Suspect]
     Route: 060
     Dates: start: 20120101

REACTIONS (5)
  - SWELLING [None]
  - AMNIOTIC FLUID VOLUME DECREASED [None]
  - MATERNAL EXPOSURE DURING PREGNANCY [None]
  - TACHYCARDIA [None]
  - WRONG TECHNIQUE IN DRUG USAGE PROCESS [None]
